FAERS Safety Report 7190240-3 (Version None)
Quarter: 2010Q4

REPORT INFORMATION
  Report Type: 
  Country: None (occurrence: None)
  Receive Date: 20101223
  Receipt Date: 20101209
  Transmission Date: 20110411
  Serious: Yes (Hospitalization)
  Sender: FDA-Public Use
  Company Number: PHHY2010US77124

PATIENT
  Sex: Male

DRUGS (1)
  1. EXJADE [Suspect]
     Indication: SICKLE CELL ANAEMIA WITH CRISIS
     Dosage: 750 MG DAILY
     Route: 048

REACTIONS (5)
  - CHEST PAIN [None]
  - GASTRIC DISORDER [None]
  - MALAISE [None]
  - NAUSEA [None]
  - VOMITING [None]
